FAERS Safety Report 10181115 (Version 2)
Quarter: 2014Q2

REPORT INFORMATION
  Report Type: Spontaneous
  Country: US (occurrence: US)
  Receive Date: 20140519
  Receipt Date: 20140519
  Transmission Date: 20141212
  Serious: No
  Sender: FDA-Public Use
  Company Number: US-AMGEN INC.-USASP2014023494

PATIENT
  Age: 81 Year
  Sex: Female
  Weight: 55.78 kg

DRUGS (12)
  1. PROLIA [Suspect]
     Indication: OSTEOPOROSIS
     Dosage: 60 MG/ML, Q6MO
     Route: 058
     Dates: start: 20140210
  2. ECOTRIN [Concomitant]
     Dosage: 325 MG, QD
     Route: 048
  3. GABAPENTIN [Concomitant]
     Dosage: 300 MG, TID
     Route: 048
  4. LEVOTHYROXINE [Concomitant]
     Dosage: 88 MUG, QD
     Route: 048
     Dates: start: 20131125
  5. LOPRESSOR [Concomitant]
     Dosage: 50 MG/1/2QD
     Route: 048
  6. LOTENSIN                           /00371202/ [Concomitant]
     Dosage: 20 MG, QD
     Route: 048
  7. NORVASC [Concomitant]
     Dosage: 5 MG, QD
     Route: 048
  8. OS-CAL 500 + D [Concomitant]
     Dosage: 1200 MG, QD
     Route: 048
  9. VESICARE [Concomitant]
     Dosage: 5 MG, QD
     Route: 048
     Dates: start: 20131125
  10. ZETIA [Concomitant]
     Dosage: 10 MG, QD
     Dates: start: 20131125
  11. FOSAMAX [Concomitant]
     Dosage: 70 MG, QWK
     Route: 048
     Dates: start: 20140210
  12. ACETIC ACID [Concomitant]
     Dosage: 2 %, UNK
     Dates: start: 20140210

REACTIONS (7)
  - Implant site pain [Unknown]
  - Muscular weakness [Recovering/Resolving]
  - Neuralgia [Unknown]
  - Ear pain [Unknown]
  - Osteoarthritis [Unknown]
  - Arthralgia [Unknown]
  - Rash [Unknown]
